FAERS Safety Report 25248212 (Version 3)
Quarter: 2025Q3

REPORT INFORMATION
  Report Type: Spontaneous
  Country: EU (occurrence: EU)
  Receive Date: 20250429
  Receipt Date: 20250715
  Transmission Date: 20251021
  Serious: Yes (Life-Threatening)
  Sender: MERCK SHARP & DOHME LLC
  Company Number: None

PATIENT
  Age: 69 Year
  Sex: Male
  Weight: 94 kg

DRUGS (5)
  1. FIDAXOMICIN [Suspect]
     Active Substance: FIDAXOMICIN
     Indication: Product used for unknown indication
     Dosage: 200MG DAILY
     Route: 048
     Dates: start: 20250303, end: 20250315
  2. MEROPENEM ANHYDROUS [Suspect]
     Active Substance: MEROPENEM ANHYDROUS
     Indication: Arthritis bacterial
     Dosage: 1500MG/DAY
     Route: 042
     Dates: start: 20250209, end: 20250306
  3. CALCIPARINE [Suspect]
     Active Substance: HEPARIN CALCIUM
     Indication: Anticoagulant therapy
     Dosage: 10000 UI/DAY
     Route: 058
     Dates: start: 20250228, end: 20250316
  4. AMLODIPINE [Suspect]
     Active Substance: AMLODIPINE BESYLATE
     Indication: Product used for unknown indication
     Dosage: 10MG/DAY
     Route: 048
     Dates: start: 20250228, end: 20250316
  5. TYGACIL [Suspect]
     Active Substance: TIGECYCLINE
     Indication: Arthritis bacterial
     Dosage: 200MG/DAY, STRENGTH: 50 MG
     Route: 042
     Dates: start: 20250212, end: 20250316

REACTIONS (1)
  - Gastrointestinal haemorrhage [Recovered/Resolved]

NARRATIVE: CASE EVENT DATE: 20250316
